FAERS Safety Report 6574261-7 (Version None)
Quarter: 2010Q1

REPORT INFORMATION
  Report Type: 
  Country: None (occurrence: None)
  Receive Date: 20100208
  Receipt Date: 20100125
  Transmission Date: 20100710
  Serious: Yes (Death)
  Sender: FDA-Public Use
  Company Number: GB-BAUSCH-2010BL000432

PATIENT
  Age: 78 Year
  Sex: Female

DRUGS (8)
  1. DEXAMETHASONE 0.5MG TAB [Suspect]
     Indication: B-CELL LYMPHOMA
  2. PREDNISOLONE [Suspect]
     Indication: B-CELL LYMPHOMA
  3. CYCLOPHOSPHAMIDE [Suspect]
     Indication: B-CELL LYMPHOMA
  4. DOXORUBICIN HCL [Suspect]
     Indication: B-CELL LYMPHOMA
  5. RITUXIMAB [Suspect]
     Indication: B-CELL LYMPHOMA
  6. VINCRISTINE [Suspect]
     Indication: B-CELL LYMPHOMA
  7. HEPARIN [Suspect]
     Indication: B-CELL LYMPHOMA
  8. WARFARIN SODIUM [Suspect]
     Indication: B-CELL LYMPHOMA

REACTIONS (1)
  - BONE MARROW FAILURE [None]
